FAERS Safety Report 5824182-X (Version None)
Quarter: 2008Q3

REPORT INFORMATION
  Report Type: 
  Country: None (occurrence: None)
  Receive Date: 20080728
  Receipt Date: 20080722
  Transmission Date: 20090109
  Serious: Yes (Hospitalization)
  Sender: FDA-Public Use
  Company Number: FR-ABBOTT-08P-056-0458605-00

PATIENT
  Sex: Male

DRUGS (10)
  1. SEVORANE LIQUID FOR INHALATION [Suspect]
     Indication: GENERAL ANAESTHESIA
     Route: 055
     Dates: start: 20080522, end: 20080522
  2. ALFENTANIL [Suspect]
     Indication: GENERAL ANAESTHESIA
     Route: 042
     Dates: start: 20080522
  3. ACETAMINOPHEN [Suspect]
     Indication: PROCEDURAL PAIN
     Route: 042
     Dates: start: 20080522, end: 20080522
  4. MORPHINE CHLORHYDRATE [Suspect]
     Indication: PROCEDURAL PAIN
     Dates: start: 20080522
  5. CYCLOSPORINE [Concomitant]
     Indication: RENAL TRANSPLANT
     Dates: start: 20050630
  6. MYCOPHENOLATE MOFETIL [Concomitant]
     Indication: RENAL TRANSPLANT
     Dates: start: 20050630
  7. PREDNISONE TAB [Concomitant]
     Indication: RENAL TRANSPLANT
     Dates: start: 20050630
  8. ISRADIPINE [Concomitant]
     Indication: RENAL TRANSPLANT
     Dates: start: 20050630
  9. CALCIUM CARBONATE [Concomitant]
     Indication: RENAL DISORDER
  10. AMOXICILLIN [Concomitant]
     Indication: POST PROCEDURAL INFECTION
     Dates: start: 20080522

REACTIONS (5)
  - ALANINE AMINOTRANSFERASE INCREASED [None]
  - ASPARTATE AMINOTRANSFERASE INCREASED [None]
  - ASTHENIA [None]
  - GAMMA-GLUTAMYLTRANSFERASE INCREASED [None]
  - HYPOTENSION [None]
